FAERS Safety Report 7151725-9 (Version None)
Quarter: 2010Q4

REPORT INFORMATION
  Report Type: 
  Country: None (occurrence: None)
  Receive Date: 20101210
  Receipt Date: 20101201
  Transmission Date: 20110411
  Serious: Yes (Hospitalization)
  Sender: FDA-Public Use
  Company Number: PHHO2010TH18397

PATIENT
  Sex: Male

DRUGS (5)
  1. AFINITOR [Suspect]
     Indication: HEPATIC NEOPLASM MALIGNANT
     Dosage: CODE NOT BROKEN
     Dates: start: 20100729, end: 20101117
  2. AFINITOR [Suspect]
     Dosage: CODE NOT BROKEN
     Dates: start: 20101125
  3. LAMIVUDINE [Concomitant]
     Indication: HEPATITIS
  4. CENTRUM [Concomitant]
     Indication: VITAMIN SUPPLEMENTATION
  5. FOLIC ACID [Concomitant]
     Indication: VITAMIN SUPPLEMENTATION

REACTIONS (5)
  - ABDOMINAL PAIN [None]
  - CONCOMITANT DISEASE PROGRESSION [None]
  - ENTERITIS NECROTICANS [None]
  - HEPATIC CIRRHOSIS [None]
  - THROMBOCYTOPENIA [None]
